FAERS Safety Report 18422476 (Version 2)
Quarter: 2020Q4

REPORT INFORMATION
  Report Type: Spontaneous
  Country: US (occurrence: US)
  Receive Date: 20201023
  Receipt Date: 20201104
  Transmission Date: 20210114
  Serious: No
  Sender: FDA-Public Use
  Company Number: US-TEVA-2020-US-1841074

PATIENT
  Sex: Male

DRUGS (1)
  1. NEFAZODONE HCL [Suspect]
     Active Substance: NEFAZODONE HYDROCHLORIDE
     Dosage: 500 MILLIGRAM DAILY;
     Route: 065

REACTIONS (1)
  - Hepatic enzyme increased [Unknown]
